FAERS Safety Report 18569120 (Version 1)
Quarter: 2020Q4

REPORT INFORMATION
  Report Type: Other
  Country: QA (occurrence: QA)
  Receive Date: 20201202
  Receipt Date: 20201202
  Transmission Date: 20210114
  Serious: Yes (Life-Threatening, Hospitalization)
  Sender: FDA-Public Use
  Company Number: QA-DEXPHARM-20201079

PATIENT
  Age: 26 Year
  Sex: Female
  Weight: 79 kg

DRUGS (4)
  1. DEXAMETHASONE. [Suspect]
     Active Substance: DEXAMETHASONE
     Dosage: DAILY DOSE: 12 MG MILLGRAM(S) EVERY DAYS
  2. AMPICILLIN AND SULBACTAM [Concomitant]
     Active Substance: AMPICILLIN SODIUM\SULBACTAM SODIUM
  3. ONDASERTON [Concomitant]
     Dosage: DAILY DOSE: 24 MG MILLGRAM(S) EVERY DAYS
  4. PARACETAMOL [Suspect]
     Active Substance: ACETAMINOPHEN
     Dosage: DAILY DOSE: 4 G GRAM(S) EVERY DAYS

REACTIONS (2)
  - Hepatic encephalopathy [Recovered/Resolved]
  - Acute hepatic failure [Recovered/Resolved]
